FAERS Safety Report 19764988 (Version 1)
Quarter: 2021Q3

REPORT INFORMATION
  Report Type: Spontaneous
  Country: US (occurrence: US)
  Receive Date: 20210831
  Receipt Date: 20210831
  Transmission Date: 20211014
  Serious: No
  Sender: FDA-Public Use
  Company Number: US-TEVA-2021-US-1944593

PATIENT
  Age: 68 Year
  Sex: Female

DRUGS (1)
  1. CINQAIR [Suspect]
     Active Substance: RESLIZUMAB
     Indication: PRODUCT USED FOR UNKNOWN INDICATION
     Dosage: MOST RECENT INFUSION ON 13?AUG?2021
     Route: 065

REACTIONS (5)
  - Malaise [Unknown]
  - Drug ineffective [Unknown]
  - Dyspnoea [Unknown]
  - Gait disturbance [Unknown]
  - Breakthrough pain [Unknown]
